FAERS Safety Report 12083112 (Version 1)
Quarter: 2016Q1

REPORT INFORMATION
  Report Type: Spontaneous
  Country: US (occurrence: None)
  Receive Date: 20160216
  Receipt Date: 20160216
  Transmission Date: 20160526
  Serious: Yes (Hospitalization)
  Sender: FDA-Public Use
  Company Number: None

PATIENT
  Age: 12 Year
  Sex: Male
  Weight: 52.16 kg

DRUGS (5)
  1. TAMIFLU [Suspect]
     Active Substance: OSELTAMIVIR PHOSPHATE
     Indication: INFLUENZA
     Dosage: 1 PILL TWICE DAILY TAKEN BY MOUTH
     Route: 048
     Dates: start: 20160212, end: 20160212
  2. FLINTSTONE VITAMINS [Concomitant]
  3. ASMANEX [Concomitant]
     Active Substance: MOMETASONE FUROATE
  4. FLUTICASONE [Concomitant]
     Active Substance: FLUTICASONE\FLUTICASONE PROPIONATE
  5. LORATIDINE [Concomitant]
     Active Substance: LORATADINE

REACTIONS (4)
  - Hallucination [None]
  - Loss of consciousness [None]
  - Gait disturbance [None]
  - Amnesia [None]

NARRATIVE: CASE EVENT DATE: 20160212
